FAERS Safety Report 8350356-2 (Version None)
Quarter: 2012Q2

REPORT INFORMATION
  Report Type: 
  Country: None (occurrence: None)
  Receive Date: 20120510
  Receipt Date: 20120426
  Transmission Date: 20120825
  Serious: Yes (Hospitalization, Other)
  Sender: FDA-Public Use
  Company Number: RO-ROCHE-1066376

PATIENT
  Age: 41 Year
  Sex: Female
  Weight: 62 kg

DRUGS (3)
  1. COPEGUS [Suspect]
     Indication: HEPATITIS C
     Dates: start: 20110819
  2. BLINDED ALISPORIVIR [Suspect]
     Indication: HEPATITIS C
     Route: 048
     Dates: start: 20110819, end: 20111114
  3. PEGASYS [Suspect]
     Indication: HEPATITIS C
     Dates: start: 20110819

REACTIONS (4)
  - HEPATITIS [None]
  - SPLENOMEGALY [None]
  - LEUKOPENIA [None]
  - HYPERBILIRUBINAEMIA [None]
